FAERS Safety Report 26021028 (Version 1)
Quarter: 2025Q4

REPORT INFORMATION
  Report Type: Spontaneous
  Country: EU (occurrence: EU)
  Receive Date: 20251110
  Receipt Date: 20251110
  Transmission Date: 20260118
  Serious: Yes (Hospitalization, Other)
  Sender: GILEAD
  Company Number: None

PATIENT
  Age: 65 Year
  Sex: Female

DRUGS (9)
  1. EPCLUSA [Suspect]
     Active Substance: SOFOSBUVIR\VELPATASVIR
     Indication: Chronic hepatitis C
     Dosage: 1 DOSAGE FORM, QD (400 MG + 100 MG)
     Route: 048
     Dates: start: 20250922, end: 20250926
  2. TACROLIMUS [Concomitant]
     Active Substance: TACROLIMUS
  3. PREDNISOLONE [Concomitant]
     Active Substance: PREDNISOLONE
     Dosage: 10 MG/DIA
  4. ASPIRIN [Concomitant]
     Active Substance: ASPIRIN
     Dosage: 100 MG/DIA
     Route: 048
  5. APIXABAN [Concomitant]
     Active Substance: APIXABAN
     Dosage: 5 + 5 MG/DIA
     Route: 048
  6. URSODIOL [Concomitant]
     Active Substance: URSODIOL
     Dosage: 500 + 500 MG /DIA
     Route: 048
  7. SERTRALINE [Concomitant]
     Active Substance: SERTRALINE HYDROCHLORIDE
     Dosage: 50 MG/DIA
     Route: 048
  8. SULFAMETHOXAZOLE\TRIMETHOPRIM [Concomitant]
     Active Substance: SULFAMETHOXAZOLE\TRIMETHOPRIM
     Dosage: 480 MG/DIA, 3X SEMANA
  9. QUETIAPINE [Concomitant]
     Active Substance: QUETIAPINE
     Dosage: 25 MG/DIA
     Route: 048

REACTIONS (1)
  - Cutaneous vasculitis [Recovered/Resolved]

NARRATIVE: CASE EVENT DATE: 20250926
